FAERS Safety Report 8202459-0 (Version None)
Quarter: 2012Q1

REPORT INFORMATION
  Report Type: 
  Country: None (occurrence: None)
  Receive Date: 20120312
  Receipt Date: 20120118
  Transmission Date: 20120608
  Serious: No
  Sender: FDA-Public Use
  Company Number: US-ABBOTT-12P-163-0895463-00

PATIENT
  Sex: Male
  Weight: 88.076 kg

DRUGS (4)
  1. DEPAKOTE [Suspect]
     Indication: EPILEPSY
     Dates: start: 19900101
  2. PEGANONE [Concomitant]
     Indication: EPILEPSY
  3. TEGRETOL [Suspect]
     Indication: EPILEPSY
  4. XYZAL [Concomitant]
     Indication: HYPERSENSITIVITY

REACTIONS (4)
  - AMNESIA [None]
  - MEMORY IMPAIRMENT [None]
  - MOOD SWINGS [None]
  - HEADACHE [None]
